FAERS Safety Report 4603071-2 (Version None)
Quarter: 2005Q1

REPORT INFORMATION
  Report Type: 
  Country: None (occurrence: None)
  Receive Date: 20050307
  Receipt Date: 20050218
  Transmission Date: 20050727
  Serious: Yes (Other)
  Sender: FDA-Public Use
  Company Number: ACO_0127_2005

PATIENT
  Age: 27 Year
  Sex: Male

DRUGS (3)
  1. TERNELIN [Suspect]
     Indication: BACK PAIN
     Dosage: PO
     Route: 048
     Dates: start: 20040901, end: 20050107
  2. PEON [Suspect]
     Indication: BACK PAIN
     Dates: start: 20040901, end: 20050107
  3. MARZULENE S [Suspect]
     Indication: GASTRITIS
     Dates: start: 20040901, end: 20050107

REACTIONS (3)
  - LYMPHOCYTE STIMULATION TEST POSITIVE [None]
  - TOXIC SKIN ERUPTION [None]
  - URTICARIA [None]
